FAERS Safety Report 4815701-0 (Version None)
Quarter: 2005Q4

REPORT INFORMATION
  Report Type: 
  Country: None (occurrence: None)
  Receive Date: 20051027
  Receipt Date: 20051014
  Transmission Date: 20060501
  Serious: Yes (Hospitalization)
  Sender: FDA-Public Use
  Company Number: 2005RR-00965

PATIENT
  Age: 76 Year
  Sex: Male

DRUGS (11)
  1. IBUPROFEN [Suspect]
     Dosage: ORAL
     Route: 048
     Dates: start: 20050924, end: 20050926
  2. DICLOFENAC SODIUM [Suspect]
     Indication: PAIN
     Dosage: 50 MG, TID, ORAL
     Route: 048
     Dates: start: 20050921, end: 20050926
  3. OMEPRAZOLE [Concomitant]
  4. METFORMIN HYDROCHORIDE [Concomitant]
  5. GLICLAZIDE [Concomitant]
  6. VERAPAMIL [Concomitant]
  7. APROVEL [Concomitant]
  8. ZANIDIP [Concomitant]
  9. BENDROFLUAZIDE [Concomitant]
  10. ASPIRIN [Concomitant]
  11. SILDENAFIL [Concomitant]

REACTIONS (1)
  - GASTROINTESTINAL HAEMORRHAGE [None]
